FAERS Safety Report 4805766-4 (Version None)
Quarter: 2005Q4

REPORT INFORMATION
  Report Type: 
  Country: None (occurrence: None)
  Receive Date: 20051021
  Receipt Date: 20051004
  Transmission Date: 20060501
  Serious: Yes (Hospitalization)
  Sender: FDA-Public Use
  Company Number: JP-ROCHE-419821

PATIENT
  Age: 70 Year
  Sex: Male

DRUGS (3)
  1. PANALDINE [Suspect]
     Indication: THROMBOSIS PROPHYLAXIS
     Dosage: INDICATION REPORTED AS ^THROMBOSIS PROPHYLAXIS / CYPHER STENT PLACEMENT / ACUTE MYOCARDIAL INFARCTI+
     Route: 048
     Dates: start: 20050615, end: 20050922
  2. WARFARIN [Suspect]
     Indication: THROMBOSIS PROPHYLAXIS
     Dosage: INDICATION REPORTED AS ^THROMBOSIS PROPHYLAXIS / STENT PLACEMENT^.
     Route: 048
     Dates: end: 20050922
  3. ASPIRIN [Concomitant]
     Indication: THROMBOSIS PROPHYLAXIS
     Route: 048

REACTIONS (3)
  - ACUTE MYOCARDIAL INFARCTION [None]
  - DISEASE PROGRESSION [None]
  - INTERSTITIAL LUNG DISEASE [None]
